FAERS Safety Report 16594962 (Version 2)
Quarter: 2019Q3

REPORT INFORMATION
  Report Type: Other
  Country: US (occurrence: US)
  Receive Date: 20190718
  Receipt Date: 20190719
  Transmission Date: 20191004
  Serious: Yes (Hospitalization)
  Sender: FDA-Public Use
  Company Number: US-BIOVITRUM-2019US1476

PATIENT
  Sex: Female

DRUGS (5)
  1. ROBAXIN [Concomitant]
     Active Substance: METHOCARBAMOL
     Dosage: 2 TABLETS TWICE DAILY AS NEEDED AND TEMPORARY
  2. BACTRIM [Interacting]
     Active Substance: SULFAMETHOXAZOLE\TRIMETHOPRIM
  3. GABAPENTIN. [Concomitant]
     Active Substance: GABAPENTIN
  4. KINERET [Suspect]
     Active Substance: ANAKINRA
     Indication: STILL^S DISEASE
  5. KINERET [Suspect]
     Active Substance: ANAKINRA
     Indication: HAEMOPHAGOCYTIC LYMPHOHISTIOCYTOSIS
     Route: 058
     Dates: start: 20190608

REACTIONS (7)
  - Nervous system disorder [Unknown]
  - Off label use [Not Recovered/Not Resolved]
  - Headache [Unknown]
  - Paraesthesia [Recovering/Resolving]
  - Muscle strain [Recovering/Resolving]
  - Drug interaction [Unknown]
  - Muscle spasms [Recovering/Resolving]
